FAERS Safety Report 10985105 (Version 1)
Quarter: 2015Q2

REPORT INFORMATION
  Report Type: Spontaneous
  Country: US (occurrence: None)
  Receive Date: 20150403
  Receipt Date: 20150403
  Transmission Date: 20150821
  Serious: Yes (Death, Hospitalization)
  Sender: FDA-Public Use
  Company Number: None

PATIENT
  Age: 17 Year
  Sex: Female
  Weight: 58.3 kg

DRUGS (5)
  1. PREDNISONE. [Suspect]
     Active Substance: PREDNISONE
     Dates: end: 20150325
  2. VINCRISTINE SULFATE. [Suspect]
     Active Substance: VINCRISTINE SULFATE
     Dates: end: 20150320
  3. DAUNORUBICIN [Suspect]
     Active Substance: DAUNORUBICIN
     Dates: end: 20150321
  4. ONCASPAR [Suspect]
     Active Substance: PEGASPARGASE
     Dates: end: 20150309
  5. METHOTREXATE [Suspect]
     Active Substance: METHOTREXATE
     Dates: end: 20150321

REACTIONS (16)
  - Tachycardia [None]
  - Hypoxia [None]
  - Liver function test abnormal [None]
  - Respiratory disorder [None]
  - Abdominal distension [None]
  - Escherichia test positive [None]
  - Cardiac arrest [None]
  - Hypotension [None]
  - Hyperbilirubinaemia [None]
  - Colitis [None]
  - Pyrexia [None]
  - Blood culture positive [None]
  - Mydriasis [None]
  - Abdominal pain [None]
  - Tachypnoea [None]
  - Haemodynamic instability [None]

NARRATIVE: CASE EVENT DATE: 20150326
